FAERS Safety Report 7059736-9 (Version None)
Quarter: 2010Q4

REPORT INFORMATION
  Report Type: 
  Country: None (occurrence: None)
  Receive Date: 20101025
  Receipt Date: 20101015
  Transmission Date: 20110411
  Serious: Yes (Hospitalization)
  Sender: FDA-Public Use
  Company Number: JP-BAYER-200910368BYL

PATIENT
  Age: 72 Year
  Sex: Male
  Weight: 61 kg

DRUGS (2)
  1. NEXAVAR [Suspect]
     Indication: RENAL CELL CARCINOMA
     Dosage: TOTAL DAILY DOSE: 800 MG  UNIT DOSE: 200 MG
     Route: 048
     Dates: start: 20080925, end: 20081021
  2. NEXAVAR [Suspect]
     Dosage: TOTAL DAILY DOSE: 400 MG  UNIT DOSE: 200 MG
     Route: 048
     Dates: start: 20081230, end: 20090223

REACTIONS (8)
  - GENERALISED OEDEMA [None]
  - HYPERTENSION [None]
  - HYPOALBUMINAEMIA [None]
  - NEPHROTIC SYNDROME [None]
  - PALMAR-PLANTAR ERYTHRODYSAESTHESIA SYNDROME [None]
  - PANCREATIC ENZYMES INCREASED [None]
  - PNEUMONIA [None]
  - RENAL FAILURE CHRONIC [None]
